FAERS Safety Report 4480092-4 (Version None)
Quarter: 2004Q3

REPORT INFORMATION
  Report Type: 
  Country: None (occurrence: None)
  Receive Date: 20040923
  Receipt Date: 20040607
  Transmission Date: 20050211
  Serious: No
  Sender: FDA-Public Use
  Company Number: USA040669459

PATIENT
  Age: 85 Year
  Sex: Female
  Weight: 56 kg

DRUGS (4)
  1. FORTEO [Suspect]
     Indication: OSTEOPOROSIS
     Dosage: 20 UG/1 DAY
     Dates: start: 20040514, end: 20040602
  2. PILOCARPINE EYE DROPS [Concomitant]
  3. LOTREL [Concomitant]
  4. MULTIVITAMIN [Concomitant]

REACTIONS (3)
  - ASTHENIA [None]
  - LETHARGY [None]
  - WEIGHT DECREASED [None]
